FAERS Safety Report 10441201 (Version 1)
Quarter: 2014Q3

REPORT INFORMATION
  Report Type: Spontaneous
  Country: US (occurrence: US)
  Receive Date: 20140909
  Receipt Date: 20140909
  Transmission Date: 20150326
  Serious: No
  Sender: FDA-Public Use
  Company Number: US-GLAXOSMITHKLINE-A1075907A

PATIENT
  Sex: Female

DRUGS (4)
  1. LAMOTRIGINE. [Suspect]
     Active Substance: LAMOTRIGINE
     Indication: CONVULSION
     Dosage: 50MG TWICE PER DAY
     Route: 048
  2. DEPAKOTE [Concomitant]
     Active Substance: DIVALPROEX SODIUM
  3. LAMICTAL [Suspect]
     Active Substance: LAMOTRIGINE
     Indication: CONVULSION
     Dosage: 50MG TWICE PER DAY
     Route: 048
  4. UNSPECIFIED MEDICATION [Concomitant]
     Active Substance: UNSPECIFIED INGREDIENT

REACTIONS (3)
  - Retching [Unknown]
  - Vomiting [Unknown]
  - Dysgeusia [Unknown]
